FAERS Safety Report 4752851-1 (Version None)
Quarter: 2005Q3

REPORT INFORMATION
  Report Type: 
  Country: None (occurrence: None)
  Receive Date: 20050714
  Receipt Date: 20040816
  Transmission Date: 20060218
  Serious: Yes (Hospitalization, Other)
  Sender: FDA-Public Use
  Company Number: 200415287US

PATIENT
  Age: 40 Year
  Sex: Female

DRUGS (20)
  1. TAXOTERE [Suspect]
     Indication: BREAST CANCER METASTATIC
     Dosage: 75 MG/M**2 Q3W
     Dates: start: 20040325, end: 20040617
  2. TAXOTERE [Suspect]
     Indication: METASTASES TO LIVER
     Dosage: 75 MG/M**2 Q3W
     Dates: start: 20040325, end: 20040617
  3. CARBOPLATIN [Concomitant]
  4. TRASTUZUMAB [Concomitant]
  5. DARBEPOETIN ALFA (ARANESP) [Concomitant]
  6. ANZEMET [Concomitant]
  7. DECADRON [Concomitant]
  8. DIPHENHYDRAMINE HYDROCHLORIDE (BENADRYL /OLD FORM/) [Concomitant]
  9. TYLENOL [Concomitant]
  10. PALONOSETRON [Concomitant]
  11. DOXORUBICIN HCL [Concomitant]
  12. CYTOXAN [Concomitant]
  13. NEUPOGEN [Concomitant]
  14. PEGFILGRASTIM (NEULASTA) [Concomitant]
  15. ERYTHROPOIETIN (PROCRIT) [Concomitant]
  16. KYTRIL [Concomitant]
  17. CIMETIDINE [Concomitant]
  18. VITAMINS [Concomitant]
  19. CALCIUM GLUCONATE [Concomitant]
  20. ZOVIRAX [Concomitant]

REACTIONS (12)
  - ABDOMINAL DISTENSION [None]
  - CONSTIPATION [None]
  - DYSPNOEA [None]
  - FATIGUE [None]
  - FLUID RETENTION [None]
  - NAIL INFECTION [None]
  - NEUROPATHY [None]
  - NEUTROPENIA [None]
  - OESOPHAGITIS [None]
  - RASH VESICULAR [None]
  - THROMBOCYTOPENIA [None]
  - WEIGHT INCREASED [None]
